FAERS Safety Report 11174140 (Version 1)
Quarter: 2015Q2

REPORT INFORMATION
  Report Type: Spontaneous
  Country: IN (occurrence: IN)
  Receive Date: 20150609
  Receipt Date: 20150609
  Transmission Date: 20150821
  Serious: Yes (Other)
  Sender: FDA-Public Use
  Company Number: IN-CELGENE-IND-2015055992

PATIENT

DRUGS (5)
  1. REVLIMID [Suspect]
     Active Substance: LENALIDOMIDE
     Indication: PLASMA CELL MYELOMA
     Dosage: 25 MILLIGRAM
     Route: 048
  2. DEXAMETHASONE. [Concomitant]
     Active Substance: DEXAMETHASONE
     Route: 041
  3. DEXAMETHASONE. [Concomitant]
     Active Substance: DEXAMETHASONE
     Route: 041
  4. THALIDOMIDE [Suspect]
     Active Substance: THALIDOMIDE
     Indication: PLASMA CELL MYELOMA
     Dosage: 200 MILLIGRAM
     Route: 048
  5. DEXAMETHASONE. [Concomitant]
     Active Substance: DEXAMETHASONE
     Indication: PLASMA CELL MYELOMA
     Route: 041

REACTIONS (10)
  - Leukopenia [Unknown]
  - Nausea [Unknown]
  - Venous thrombosis [Unknown]
  - Constipation [Unknown]
  - Anaemia [Unknown]
  - Pyrexia [Unknown]
  - Thrombocytopenia [Unknown]
  - Vomiting [Unknown]
  - Neuropathy peripheral [Unknown]
  - Diabetes mellitus [Unknown]
